FAERS Safety Report 12369499 (Version 1)
Quarter: 2016Q2

REPORT INFORMATION
  Report Type: Spontaneous
  Country: US (occurrence: None)
  Receive Date: 20160513
  Receipt Date: 20160513
  Transmission Date: 20160815
  Serious: No
  Sender: FDA-Public Use
  Company Number: None

PATIENT
  Age: 51 Year
  Sex: Male

DRUGS (2)
  1. COTELLIC [Suspect]
     Active Substance: COBIMETINIB
     Indication: METASTASIS
     Dosage: 60MG QD1-21 OFF 7 PO
     Dates: start: 20160420
  2. ZELBORAF [Concomitant]
     Active Substance: VEMURAFENIB

REACTIONS (2)
  - Thermal burn [None]
  - Therapy cessation [None]

NARRATIVE: CASE EVENT DATE: 201605
